FAERS Safety Report 7058057-8 (Version None)
Quarter: 2010Q4

REPORT INFORMATION
  Report Type: 
  Country: None (occurrence: None)
  Receive Date: 20101021
  Receipt Date: 20101021
  Transmission Date: 20110411
  Serious: No
  Sender: FDA-Public Use
  Company Number: None

PATIENT
  Sex: Female
  Weight: 53.5244 kg

DRUGS (1)
  1. SIMVASTATIN [Suspect]
     Indication: BLOOD CHOLESTEROL INCREASED
     Dosage: 20 MG ONCE DAILY PO (DURATION: EST 1 AND 1/2 YEARS)
     Route: 048

REACTIONS (3)
  - ALOPECIA [None]
  - MUSCLE ATROPHY [None]
  - WEIGHT DECREASED [None]
